FAERS Safety Report 7508783-9 (Version None)
Quarter: 2011Q2

REPORT INFORMATION
  Report Type: 
  Country: None (occurrence: None)
  Receive Date: 20110527
  Receipt Date: 20110216
  Transmission Date: 20111010
  Serious: No
  Sender: FDA-Public Use
  Company Number: A0913973A

PATIENT
  Age: 52 Year
  Sex: Female

DRUGS (2)
  1. NO CONCURRENT MEDICATION [Concomitant]
  2. VENTOLIN [Suspect]
     Indication: ASTHMA
     Dosage: 1PUFF AS REQUIRED
     Route: 055
     Dates: start: 19990101

REACTIONS (7)
  - DIZZINESS [None]
  - HYPERSOMNIA [None]
  - ORAL DISCOMFORT [None]
  - SOMNOLENCE [None]
  - PRODUCT TASTE ABNORMAL [None]
  - DYSSTASIA [None]
  - PRODUCT QUALITY ISSUE [None]
